FAERS Safety Report 8259305-9 (Version None)
Quarter: 2012Q2

REPORT INFORMATION
  Report Type: 
  Country: None (occurrence: None)
  Receive Date: 20120404
  Receipt Date: 20120305
  Transmission Date: 20120825
  Serious: Yes (Other)
  Sender: FDA-Public Use
  Company Number: US-AMGEN-USASP2012014320

PATIENT
  Age: 63 Year
  Sex: Female

DRUGS (3)
  1. ARAVA [Concomitant]
     Dosage: 1 MG, UNK
     Dates: start: 20000101
  2. ENBREL [Suspect]
     Indication: RHEUMATOID ARTHRITIS
     Dosage: 50 MG, QWK
     Dates: start: 20030801, end: 20120218
  3. METHOTREXATE [Concomitant]
     Dosage: 2 MG, UNK
     Dates: start: 19980101

REACTIONS (11)
  - TINNITUS [None]
  - PARANASAL SINUS HYPERSECRETION [None]
  - HAEMOPTYSIS [None]
  - RHEUMATOID ARTHRITIS [None]
  - PYREXIA [None]
  - HEADACHE [None]
  - SINUSITIS [None]
  - HEART RATE INCREASED [None]
  - PALPITATIONS [None]
  - COUGH [None]
  - CARDIAC FLUTTER [None]
